FAERS Safety Report 21873339 (Version 1)
Quarter: 2023Q1

REPORT INFORMATION
  Report Type: Spontaneous
  Country: US (occurrence: None)
  Receive Date: 20230116
  Receipt Date: 20230116
  Transmission Date: 20230418
  Serious: Yes (Disabling)
  Sender: FDA-Public Use
  Company Number: None

PATIENT
  Age: 47 Year
  Sex: Female
  Weight: 86.18 kg

DRUGS (6)
  1. MIRENA [Suspect]
     Active Substance: LEVONORGESTREL
  2. UNSPECIFIED INGREDIENT [Suspect]
     Active Substance: UNSPECIFIED INGREDIENT
  3. LISINOPRIL [Concomitant]
     Active Substance: LISINOPRIL
  4. WELLBUTRIN [Concomitant]
     Active Substance: BUPROPION HYDROCHLORIDE
  5. PANTOPRAZOLE [Concomitant]
     Active Substance: PANTOPRAZOLE
  6. MAGNESIUM [Concomitant]
     Active Substance: MAGNESIUM

REACTIONS (14)
  - Abdominal pain [None]
  - Muscle spasms [None]
  - Headache [None]
  - Scan with contrast [None]
  - Device dislocation [None]
  - Embedded device [None]
  - Complication of device removal [None]
  - Pain [None]
  - Complication of device removal [None]
  - Screaming [None]
  - Crying [None]
  - Hyperhidrosis [None]
  - Device breakage [None]
  - Dyspareunia [None]

NARRATIVE: CASE EVENT DATE: 20221021
